FAERS Safety Report 18437850 (Version 2)
Quarter: 2020Q4

REPORT INFORMATION
  Report Type: Report from Study
  Country: FR (occurrence: FR)
  Receive Date: 20201028
  Receipt Date: 20201105
  Transmission Date: 20210114
  Serious: Yes (Death)
  Sender: FDA-Public Use
  Company Number: FR-WORLDWIDE CLINICAL TRIALS-2020-FR-000602

PATIENT
  Age: 56 Year
  Sex: Female

DRUGS (1)
  1. DCC-2618 [Suspect]
     Active Substance: RIPRETINIB
     Indication: GASTROINTESTINAL STROMAL TUMOUR
     Dosage: 150 MILLIGRAM, QD
     Route: 048
     Dates: start: 20191120, end: 20200918

REACTIONS (1)
  - Death [Fatal]
